FAERS Safety Report 6910313-7 (Version None)
Quarter: 2010Q3

REPORT INFORMATION
  Report Type: 
  Country: None (occurrence: None)
  Receive Date: 20100806
  Receipt Date: 20100726
  Transmission Date: 20110219
  Serious: Yes (Other)
  Sender: FDA-Public Use
  Company Number: FI-PFIZER INC-2009221250

PATIENT
  Age: 49 Year
  Sex: Female

DRUGS (9)
  1. LYRICA [Suspect]
     Dosage: 150 MG, 3X/DAY
     Route: 048
  2. CYMBALTA [Concomitant]
     Dosage: 60 MG, 1X/DAY
     Route: 048
  3. EFFEXOR [Concomitant]
     Dosage: 75 MG, 1X/DAY
     Route: 048
  4. TRIPTYL [Concomitant]
     Dosage: 25 MG, 1X/DAY
     Route: 048
  5. PANACOD [Concomitant]
     Dosage: 2-6 TABLETS DAILY
     Route: 048
  6. PANACOD [Concomitant]
     Dosage: 2 TABLETS, 2X/DAY
  7. MELATONIN [Concomitant]
     Dosage: 2 MG, 1X/DAY
     Route: 048
  8. MELATONIN [Concomitant]
     Dosage: 4 MG, 1X/DAY
     Route: 048
  9. ZOPINOX [Concomitant]
     Dosage: 3.75 MG, AS NEEDED
     Route: 048

REACTIONS (1)
  - RENAL TUBULAR DISORDER [None]
